FAERS Safety Report 21029790 (Version 1)
Quarter: 2022Q2

REPORT INFORMATION
  Report Type: Spontaneous
  Country: US (occurrence: None)
  Receive Date: 20220630
  Receipt Date: 20220630
  Transmission Date: 20220721
  Serious: No
  Sender: FDA-Public Use
  Company Number: 2022A234938

PATIENT
  Sex: Female
  Weight: 54.4 kg

DRUGS (1)
  1. BUDESONIDE\FORMOTEROL [Suspect]
     Active Substance: BUDESONIDE\FORMOTEROL
     Indication: Asthma
     Dosage: 160-4.5 MCG 2 PUFFS TWICE A DAY
     Route: 055
     Dates: start: 202202

REACTIONS (5)
  - Cough [Not Recovered/Not Resolved]
  - Quality of life decreased [Unknown]
  - Incorrect dose administered [Unknown]
  - Device delivery system issue [Unknown]
  - Poor quality device used [Unknown]
